FAERS Safety Report 13022298 (Version 2)
Quarter: 2016Q4

REPORT INFORMATION
  Report Type: Spontaneous
  Country: US (occurrence: US)
  Receive Date: 20161213
  Receipt Date: 20161219
  Transmission Date: 20170207
  Serious: No
  Sender: FDA-Public Use
  Company Number: US-PFIZER INC-2016574388

PATIENT
  Age: 83 Year
  Sex: Female

DRUGS (1)
  1. AMLODIPINE BESILATE [Suspect]
     Active Substance: AMLODIPINE BESYLATE
     Dosage: 5 DF, UNK (FIVE TABLETS)
     Dates: start: 20161206

REACTIONS (4)
  - Dizziness [Unknown]
  - Wrong drug administered [Unknown]
  - Accidental overdose [Unknown]
  - Feeling hot [Unknown]

NARRATIVE: CASE EVENT DATE: 201612
